FAERS Safety Report 5272797-2 (Version None)
Quarter: 2007Q1

REPORT INFORMATION
  Report Type: 
  Country: None (occurrence: None)
  Receive Date: 20061219
  Receipt Date: 20060913
  Transmission Date: 20070707
  Serious: Yes (Hospitalization, Other)
  Sender: FDA-Public Use
  Company Number: US-JNJFOC-20060904268

PATIENT
  Age: 40 Year
  Sex: Female
  Weight: 58.9676 kg

DRUGS (3)
  1. ORTHO EVRA [Suspect]
     Indication: MENSTRUATION IRREGULAR
     Dosage: TRANSDERMAL
     Route: 062
     Dates: start: 20040401, end: 20050511
  2. TOPROL-XL [Concomitant]
  3. FROVA (ALL OTHER THERAPEUTIC PRODUCTS) [Concomitant]

REACTIONS (3)
  - INCORRECT DRUG ADMINISTRATION DURATION [None]
  - TRANSIENT ISCHAEMIC ATTACK [None]
  - VAGINAL HAEMORRHAGE [None]
